FAERS Safety Report 14114441 (Version 1)
Quarter: 2017Q4

REPORT INFORMATION
  Report Type: Spontaneous
  Country: US (occurrence: US)
  Receive Date: 20171023
  Receipt Date: 20171023
  Transmission Date: 20180321
  Serious: No
  Sender: FDA-Public Use
  Company Number: US-PFIZER INC-2017452655

PATIENT
  Age: 76 Year
  Sex: Male
  Weight: 70.31 kg

DRUGS (4)
  1. PREGABALIN. [Suspect]
     Active Substance: PREGABALIN
     Indication: NEUROPATHY PERIPHERAL
     Dosage: 25 MG, 2X/DAY (25MG 1 CAPSULE BY MOUTH 1 IN THE MORNING AND EVENING)
     Route: 048
     Dates: end: 20171014
  2. ALPRAZOLAM. [Concomitant]
     Active Substance: ALPRAZOLAM
     Indication: ANXIETY
     Dosage: 2 MG, 4X/DAY
     Route: 048
  3. PREGABALIN. [Suspect]
     Active Substance: PREGABALIN
     Indication: NEURALGIA
     Dosage: TAKE ONE PREGABALIN
     Dates: start: 201709
  4. LISINOPRIL. [Concomitant]
     Active Substance: LISINOPRIL
     Indication: HYPERTENSION
     Dosage: 10 MG, 10MG BY MOUTH TWICE A DAY IS NEEDED BP ABOVE 125
     Route: 048

REACTIONS (6)
  - Myalgia [Unknown]
  - Decreased appetite [Unknown]
  - Drug ineffective [Unknown]
  - Dehydration [Unknown]
  - Pain [Unknown]
  - Condition aggravated [Unknown]
